FAERS Safety Report 5718910-1 (Version None)
Quarter: 2008Q2

REPORT INFORMATION
  Report Type: 
  Country: None (occurrence: None)
  Receive Date: 20080425
  Receipt Date: 20080416
  Transmission Date: 20081010
  Serious: Yes (Hospitalization, Other)
  Sender: FDA-Public Use
  Company Number: US-MERCK-0705USA02504

PATIENT
  Age: 58 Year
  Sex: Female

DRUGS (10)
  1. FOSAMAX [Suspect]
     Indication: OSTEOPOROSIS
     Route: 048
     Dates: start: 19980701, end: 20061001
  2. FOSAMAX [Suspect]
     Route: 048
     Dates: start: 20000901
  3. PREMARIN [Concomitant]
     Indication: HORMONE REPLACEMENT THERAPY
     Route: 048
     Dates: start: 19920101, end: 20020101
  4. PROVERA [Concomitant]
     Indication: HORMONE REPLACEMENT THERAPY
     Route: 048
     Dates: start: 19920101, end: 20040101
  5. ALLEGRA D 24 HOUR [Concomitant]
     Indication: HYPERSENSITIVITY
     Route: 065
     Dates: start: 19980101
  6. FLONASE [Concomitant]
     Indication: HYPERSENSITIVITY
     Route: 065
     Dates: start: 19980101
  7. FLOVENT [Concomitant]
     Indication: ASTHMA
     Route: 065
     Dates: start: 19980101
  8. COMBIVENT [Concomitant]
     Indication: ASTHMA
     Route: 065
     Dates: start: 19980101
  9. THERAGRAN-M [Concomitant]
     Route: 065
     Dates: start: 20000101
  10. PREDNISONE [Concomitant]
     Indication: ASTHMA
     Route: 065
     Dates: start: 19980101

REACTIONS (13)
  - ANXIETY [None]
  - ASTHMA [None]
  - BLOOD CHOLESTEROL INCREASED [None]
  - BRONCHITIS [None]
  - CHEST PAIN [None]
  - DEPRESSION [None]
  - ELECTROCARDIOGRAM ABNORMAL [None]
  - ENDOMETRIAL CANCER [None]
  - GINGIVITIS [None]
  - HYPERLIPIDAEMIA [None]
  - OSTEONECROSIS [None]
  - RESORPTION BONE INCREASED [None]
  - SINUSITIS [None]
